FAERS Safety Report 9406975 (Version 1)
Quarter: 2013Q3

REPORT INFORMATION
  Report Type: Spontaneous
  Country: US (occurrence: US)
  Receive Date: 20130718
  Receipt Date: 20130718
  Transmission Date: 20140515
  Serious: No
  Sender: FDA-Public Use
  Company Number: US-PFIZER INC-2013207737

PATIENT
  Age: 80 Year
  Sex: Male
  Weight: 72.56 kg

DRUGS (9)
  1. SUTENT [Suspect]
     Dosage: 37.5 MG, CYCLIC FOR 4 WEEKS ON FOLLOWED BY 2 WEEKS REST
     Dates: start: 20121212
  2. SUTENT [Suspect]
     Dosage: 25 MG, UNK
  3. TAMSULOSIN [Concomitant]
     Dosage: UNK
  4. OMEPRAZOLE [Concomitant]
     Dosage: UNK
  5. ISOSORBIDE [Concomitant]
     Dosage: UNK
  6. COUMADIN [Concomitant]
     Dosage: UNK
  7. LOVASTATIN [Concomitant]
     Dosage: UNK
  8. FISH OIL [Concomitant]
     Dosage: UNK
  9. GINKGO BILOBA [Concomitant]
     Dosage: UNK

REACTIONS (1)
  - Diarrhoea [Not Recovered/Not Resolved]
